FAERS Safety Report 9551290 (Version 6)
Quarter: 2014Q2

REPORT INFORMATION
  Report Type: Spontaneous
  Country: US (occurrence: US)
  Receive Date: 20130925
  Receipt Date: 20140606
  Transmission Date: 20141212
  Serious: Yes (Hospitalization, Other)
  Sender: FDA-Public Use
  Company Number: US-JNJFOC-20130909672

PATIENT
  Age: 68 Year
  Sex: Male
  Weight: 68.04 kg

DRUGS (6)
  1. TYLENOL PM [Suspect]
     Indication: INSOMNIA
     Dosage: 2 TO 3 PILLS
     Route: 048
     Dates: start: 200909, end: 20091002
  2. TYLENOL PM [Suspect]
     Indication: NASOPHARYNGITIS
     Dosage: 2 TO 3 PILLS
     Route: 048
     Dates: start: 200909, end: 20091002
  3. SIMVASTATIN [Concomitant]
     Indication: BLOOD CHOLESTEROL INCREASED
     Route: 048
  4. GLIPIZIDE [Concomitant]
     Indication: DIABETES MELLITUS
     Route: 065
  5. METFORMIN [Concomitant]
     Indication: PRODUCT USED FOR UNKNOWN INDICATION
     Route: 048
  6. LIPITOR [Concomitant]
     Indication: PRODUCT USED FOR UNKNOWN INDICATION
     Route: 065

REACTIONS (8)
  - Acute hepatic failure [Unknown]
  - Diabetic ketoacidosis [Unknown]
  - Coagulopathy [Unknown]
  - Microcytic anaemia [Unknown]
  - Incorrect dose administered [Unknown]
  - Leukocytosis [Recovering/Resolving]
  - Hyponatraemia [Recovered/Resolved]
  - Hyperkalaemia [Recovered/Resolved]
